FAERS Safety Report 7460476-2 (Version None)
Quarter: 2011Q2

REPORT INFORMATION
  Report Type: 
  Country: None (occurrence: None)
  Receive Date: 20110505
  Receipt Date: 20110502
  Transmission Date: 20111010
  Serious: Yes (Hospitalization)
  Sender: FDA-Public Use
  Company Number: FR-PFIZER INC-2011093619

PATIENT
  Age: 48 Year
  Sex: Female

DRUGS (3)
  1. SEROPLEX [Suspect]
     Indication: SUICIDE ATTEMPT
     Dosage: UNK
     Route: 048
     Dates: start: 20110411
  2. XANAX [Suspect]
     Indication: SUICIDE ATTEMPT
     Dosage: UNK
     Route: 048
     Dates: start: 20110411
  3. IMOVANE [Suspect]
     Indication: SUICIDE ATTEMPT
     Dosage: UNK
     Route: 048
     Dates: start: 20110411

REACTIONS (1)
  - SUICIDE ATTEMPT [None]
